FAERS Safety Report 9922561 (Version 1)
Quarter: 2014Q1

REPORT INFORMATION
  Report Type: Spontaneous
  Country: US (occurrence: US)
  Receive Date: 20140225
  Receipt Date: 20140225
  Transmission Date: 20141002
  Serious: Yes (Other)
  Sender: FDA-Public Use
  Company Number: US-BAYER-2014-025129

PATIENT
  Age: 69 Year
  Sex: Female

DRUGS (5)
  1. ONE A DAY WOMEN^S 50+ HEALTHY ADVANTAGE [Suspect]
     Dosage: 1 DF, QD WITH FOOD
     Route: 048
  2. ALEVE CAPLET [Suspect]
     Indication: MYALGIA
     Dosage: 2 DF, QD
     Route: 048
     Dates: start: 2012
  3. VITAMIN E [Concomitant]
  4. VITAMIN D [Concomitant]
  5. ECHINACEA [Concomitant]

REACTIONS (2)
  - Coeliac disease [Not Recovered/Not Resolved]
  - Incorrect drug administration duration [None]
